FAERS Safety Report 9307898 (Version 2)
Quarter: 2014Q1

REPORT INFORMATION
  Report Type: Spontaneous
  Country: US (occurrence: US)
  Receive Date: 20130524
  Receipt Date: 20140128
  Transmission Date: 20141002
  Serious: Yes (Other)
  Sender: FDA-Public Use
  Company Number: US-BAYER-2013-064305

PATIENT
  Age: 18 Year
  Sex: Female

DRUGS (1)
  1. YASMIN [Suspect]
     Dosage: UNK
     Dates: start: 200710, end: 200807

REACTIONS (5)
  - Cholecystitis chronic [None]
  - Biliary dyskinesia [None]
  - Gallbladder injury [None]
  - Pain [None]
  - Injury [None]
